FAERS Safety Report 9206670 (Version 1)
Quarter: 2013Q2

REPORT INFORMATION
  Report Type: Spontaneous
  Country: IT (occurrence: IT)
  Receive Date: 20130403
  Receipt Date: 20130403
  Transmission Date: 20140414
  Serious: Yes (Hospitalization)
  Sender: FDA-Public Use
  Company Number: IT-SANOFI-AVENTIS-2013SA031947

PATIENT
  Age: 40 Year
  Sex: Female

DRUGS (4)
  1. LASIX [Suspect]
     Indication: INTENTIONAL SELF-INJURY
     Dosage: DOSE-ONE POSOLOGICAL UNIT
     Route: 048
     Dates: start: 20130202, end: 20130202
  2. ZOLOFT [Suspect]
     Indication: INTENTIONAL SELF-INJURY
     Dosage: DOSE-15 POSOLOGICAL UNIT
     Route: 048
     Dates: start: 20130202, end: 20130202
  3. MEDROL [Suspect]
     Indication: INTENTIONAL SELF-INJURY
     Dosage: DOSE-7 POSOLOGICAL UNIT
     Route: 048
     Dates: start: 20130202, end: 20130202
  4. CHLORDIAZEPOXIDE [Suspect]
     Indication: INTENTIONAL SELF-INJURY
     Route: 048
     Dates: start: 20130202, end: 20130202

REACTIONS (1)
  - Confusional state [Unknown]
